FAERS Safety Report 8589540-1 (Version None)
Quarter: 2012Q3

REPORT INFORMATION
  Report Type: 
  Country: None (occurrence: None)
  Receive Date: 20120813
  Receipt Date: 20120801
  Transmission Date: 20120928
  Serious: Yes (Hospitalization, Other)
  Sender: FDA-Public Use
  Company Number: US-009507513-1206USA00881

PATIENT

DRUGS (4)
  1. OS-CAL (CALCITRIOL) [Concomitant]
     Dosage: 1000 MG, QD
     Dates: start: 19920101
  2. VITAMIN D [Concomitant]
     Dosage: 50 MICROGRAM, QD
  3. FOSAMAX [Suspect]
     Indication: OSTEOPOROSIS
     Dosage: UNK DF, UNK
     Route: 048
     Dates: start: 19980101, end: 20100510
  4. PREMARIN [Concomitant]
     Indication: BLOOD OESTROGEN ABNORMAL
     Dosage: UNK
     Dates: start: 19680101, end: 20100101

REACTIONS (10)
  - BONE SCAN [None]
  - FATIGUE [None]
  - VITAMIN D DEFICIENCY [None]
  - MENTAL DISORDER [None]
  - EMOTIONAL DISTRESS [None]
  - GASTROOESOPHAGEAL REFLUX DISEASE [None]
  - PAIN [None]
  - CALCIUM DEFICIENCY [None]
  - MULTIPLE INJURIES [None]
  - FEMUR FRACTURE [None]
